FAERS Safety Report 10177100 (Version 1)
Quarter: 2014Q2

REPORT INFORMATION
  Report Type: Spontaneous
  Country: US (occurrence: US)
  Receive Date: 20140516
  Receipt Date: 20140516
  Transmission Date: 20141212
  Serious: No
  Sender: FDA-Public Use
  Company Number: US-TEVA-481844USA

PATIENT
  Age: 35 Year
  Sex: Female
  Weight: 87.17 kg

DRUGS (2)
  1. PARAGARD 380A [Suspect]
     Indication: CONTRACEPTION
     Route: 015
     Dates: start: 20130304
  2. METFORMIN [Concomitant]
     Indication: POLYCYSTIC OVARIES

REACTIONS (1)
  - Device expulsion [Not Recovered/Not Resolved]
